FAERS Safety Report 7814825-3 (Version None)
Quarter: 2011Q4

REPORT INFORMATION
  Report Type: 
  Country: None (occurrence: None)
  Receive Date: 20111014
  Receipt Date: 20111006
  Transmission Date: 20120403
  Serious: Yes (Other)
  Sender: FDA-Public Use
  Company Number: AU-ABBOTT-11P-008-0861560-00

PATIENT
  Sex: Female
  Weight: 58 kg

DRUGS (2)
  1. LIPIDIL [Suspect]
     Indication: PRODUCT USED FOR UNKNOWN INDICATION
     Dates: start: 20100601
  2. DOXY-50 [Concomitant]
     Indication: PRODUCT USED FOR UNKNOWN INDICATION
     Dosage: 100 MG
     Dates: start: 20110408, end: 20110511

REACTIONS (5)
  - LIPASE INCREASED [None]
  - NAUSEA [None]
  - ABDOMINAL PAIN [None]
  - PANCREATITIS ACUTE [None]
  - MYALGIA [None]
